FAERS Safety Report 10537599 (Version 3)
Quarter: 2015Q3

REPORT INFORMATION
  Report Type: Spontaneous
  Country: CA (occurrence: CA)
  Receive Date: 20141023
  Receipt Date: 20150707
  Transmission Date: 20151125
  Serious: Yes (Other)
  Sender: FDA-Public Use
  Company Number: CA-JNJFOC-20141010079

PATIENT
  Sex: Male

DRUGS (1)
  1. SPORANOX [Suspect]
     Active Substance: ITRACONAZOLE\SODIUM CHLORIDE
     Indication: BLASTOMYCOSIS
     Route: 065
     Dates: start: 20140422, end: 20141015

REACTIONS (1)
  - VIIth nerve paralysis [Recovered/Resolved]
